FAERS Safety Report 25850242 (Version 2)
Quarter: 2025Q4

REPORT INFORMATION
  Report Type: Spontaneous
  Country: EU (occurrence: EU)
  Receive Date: 20250926
  Receipt Date: 20251014
  Transmission Date: 20260118
  Serious: Yes (Death, Hospitalization, Other)
  Sender: ALKEM
  Company Number: None

PATIENT
  Sex: Male

DRUGS (4)
  1. MYCOPHENOLATE MOFETIL [Suspect]
     Active Substance: MYCOPHENOLATE MOFETIL
     Indication: Immunosuppressant drug therapy
     Dosage: UNK
     Route: 065
  2. CYCLOSPORINE [Suspect]
     Active Substance: CYCLOSPORINE
     Indication: Immunosuppressant drug therapy
     Dosage: UNK
     Route: 065
  3. PREDNISOLONE [Suspect]
     Active Substance: PREDNISOLONE
     Indication: Immunosuppressant drug therapy
     Dosage: UNK
     Route: 065
  4. MEROPENEM [Concomitant]
     Active Substance: MEROPENEM
     Indication: Evidence based treatment
     Dosage: UNK
     Route: 065

REACTIONS (7)
  - Cardiac failure chronic [Fatal]
  - Aneurysm [Recovered/Resolved]
  - Sensory loss [Recovered/Resolved]
  - Infection [Fatal]
  - Infection [Fatal]
  - Oedema peripheral [Recovered/Resolved]
  - Peripheral artery aneurysm [Unknown]
